FAERS Safety Report 16446176 (Version 1)
Quarter: 2019Q2

REPORT INFORMATION
  Report Type: Spontaneous
  Country: CN (occurrence: CN)
  Receive Date: 20190618
  Receipt Date: 20190618
  Transmission Date: 20190711
  Serious: Yes (Hospitalization)
  Sender: FDA-Public Use
  Company Number: CN-GLAXOSMITHKLINE-CN2019107456

PATIENT
  Age: 39 Year
  Sex: Male
  Weight: 75 kg

DRUGS (2)
  1. DICLOFENAC SODIUM. [Suspect]
     Active Substance: DICLOFENAC SODIUM
     Indication: ANKLE FRACTURE
     Dosage: 75 MG, 1 PER DAY
     Route: 048
     Dates: start: 20190528, end: 20190531
  2. DIOSMIN [Suspect]
     Active Substance: DIOSMIN
     Indication: ANKLE FRACTURE
     Dosage: 0.9 G, 2 TIMES PER DAY
     Route: 048
     Dates: start: 20190528, end: 20190531

REACTIONS (2)
  - Rash [Recovering/Resolving]
  - Pyrexia [Recovering/Resolving]

NARRATIVE: CASE EVENT DATE: 20190531
